FAERS Safety Report 11950222 (Version 1)
Quarter: 2016Q1

REPORT INFORMATION
  Report Type: Spontaneous
  Country: US (occurrence: US)
  Receive Date: 20160126
  Receipt Date: 20160126
  Transmission Date: 20160526
  Serious: No
  Sender: FDA-Public Use
  Company Number: US-B.I. PHARMACEUTICALS,INC./RIDGEFIELD-2016-BI-02334BP

PATIENT
  Sex: Male
  Weight: 89 kg

DRUGS (11)
  1. SPIRIVA [Suspect]
     Active Substance: TIOTROPIUM BROMIDE MONOHYDRATE
     Indication: CHRONIC OBSTRUCTIVE PULMONARY DISEASE
     Dosage: 18 MCG
     Route: 055
     Dates: start: 2014, end: 201511
  2. ATORVASTATIN [Concomitant]
     Active Substance: ATORVASTATIN
     Indication: HYPERTENSION
     Dosage: 40 MG
     Route: 048
     Dates: start: 20150919
  3. LOSARTAN/HCTZ [Concomitant]
     Active Substance: HYDROCHLOROTHIAZIDE\LOSARTAN
     Indication: HYPERTENSION
     Dosage: DOSE PER APPLICATION AND DAILY DOSE: 100/25 MG
     Route: 048
     Dates: start: 20130625
  4. BABY ASPIRIN [Concomitant]
     Active Substance: ASPIRIN
     Indication: CARDIAC DISORDER
     Dosage: 81 MG
     Route: 048
     Dates: start: 2006
  5. HYDRALAZINE [Concomitant]
     Active Substance: HYDRALAZINE HYDROCHLORIDE
     Indication: HYPERTENSION
     Dosage: 50 MG
     Route: 048
     Dates: start: 2010
  6. GLIPIZIDE. [Concomitant]
     Active Substance: GLIPIZIDE
     Indication: DIABETES MELLITUS
     Dosage: 1 MG
     Route: 048
     Dates: start: 20130625
  7. METOPROLOL TARTRATE. [Concomitant]
     Active Substance: METOPROLOL TARTRATE
     Indication: HYPERTENSION
     Dosage: 25 MG
     Route: 048
     Dates: start: 201501
  8. POTASSIUM CL [Concomitant]
     Active Substance: POTASSIUM CHLORIDE
     Indication: BLOOD POTASSIUM DECREASED
     Dosage: 10 MG
     Route: 048
     Dates: start: 20150717
  9. OMEPRAZOLE. [Concomitant]
     Active Substance: OMEPRAZOLE
     Indication: GASTROOESOPHAGEAL REFLUX DISEASE
     Dosage: 40 MG
     Route: 048
     Dates: start: 2008
  10. FUROSEMIDE. [Concomitant]
     Active Substance: FUROSEMIDE
     Indication: FLUID RETENTION
  11. FUROSEMIDE. [Concomitant]
     Active Substance: FUROSEMIDE
     Indication: JOINT SWELLING
     Dosage: 20 MG
     Route: 048
     Dates: start: 20150717

REACTIONS (6)
  - Hypoacusis [Not Recovered/Not Resolved]
  - Dry mouth [Recovered/Resolved]
  - Weight decreased [Not Recovered/Not Resolved]
  - Tinnitus [Not Recovered/Not Resolved]
  - Balance disorder [Not Recovered/Not Resolved]
  - Aphonia [Recovered/Resolved]

NARRATIVE: CASE EVENT DATE: 2014
